FAERS Safety Report 22366235 (Version 1)
Quarter: 2023Q2

REPORT INFORMATION
  Report Type: Spontaneous
  Country: PL (occurrence: PL)
  Receive Date: 20230525
  Receipt Date: 20230525
  Transmission Date: 20230722
  Serious: Yes (Hospitalization, Other)
  Sender: FDA-Public Use
  Company Number: PL-Dr. FALK Pharma GmbH-SA-163-23

PATIENT
  Age: 17 Year
  Sex: Male

DRUGS (1)
  1. MESALAMINE [Suspect]
     Active Substance: MESALAMINE
     Indication: Colitis ulcerative
     Dosage: UNK
     Route: 065
     Dates: start: 202212

REACTIONS (2)
  - Cardiotoxicity [Recovering/Resolving]
  - Acute left ventricular failure [Recovering/Resolving]
